FAERS Safety Report 18688603 (Version 1)
Quarter: 2020Q4

REPORT INFORMATION
  Report Type: Spontaneous
  Country: US (occurrence: US)
  Receive Date: 20201231
  Receipt Date: 20201231
  Transmission Date: 20210114
  Serious: Yes (Hospitalization, Other)
  Sender: FDA-Public Use
  Company Number: None

PATIENT
  Age: 69 Year
  Sex: Male
  Weight: 125.3 kg

DRUGS (5)
  1. REMDESIVIR. [Concomitant]
     Active Substance: REMDESIVIR
     Dates: start: 20201216, end: 20201220
  2. DECADRON [Concomitant]
     Active Substance: DEXAMETHASONE
     Dates: start: 20201215, end: 20201221
  3. BARICITINIB. [Suspect]
     Active Substance: BARICITINIB
     Indication: COVID-19
     Route: 048
     Dates: start: 20201216, end: 20201229
  4. METHYLPREDNISOLONE. [Concomitant]
     Active Substance: METHYLPREDNISOLONE
     Dates: start: 20201221
  5. PIPERCILLIN-TAZOBACTAM [Concomitant]
     Active Substance: PIPERACILLIN SODIUM\TAZOBACTAM SODIUM
     Dates: start: 20201227, end: 20201231

REACTIONS (6)
  - Hypotension [None]
  - Pathogen resistance [None]
  - Intentional product use issue [None]
  - Pneumonia pseudomonal [None]
  - Respiratory depression [None]
  - Tracheostomy [None]

NARRATIVE: CASE EVENT DATE: 20201230
